FAERS Safety Report 7096388-6 (Version None)
Quarter: 2010Q4

REPORT INFORMATION
  Report Type: 
  Country: None (occurrence: None)
  Receive Date: 20101110
  Receipt Date: 20101110
  Transmission Date: 20110411
  Serious: No
  Sender: FDA-Public Use
  Company Number: None

PATIENT
  Sex: Male

DRUGS (1)
  1. INVANZ [Suspect]
     Dosage: 500MG DAILY IV
     Route: 042
     Dates: start: 20100901, end: 20100902

REACTIONS (1)
  - HALLUCINATION, VISUAL [None]
